FAERS Safety Report 11082104 (Version 1)
Quarter: 2015Q2

REPORT INFORMATION
  Report Type: Spontaneous
  Country: US (occurrence: None)
  Receive Date: 20150430
  Receipt Date: 20150430
  Transmission Date: 20150821
  Serious: Yes (Hospitalization)
  Sender: FDA-Public Use
  Company Number: None

PATIENT
  Age: 46 Year
  Sex: Male
  Weight: 75.3 kg

DRUGS (2)
  1. PRIMAXIN [Suspect]
     Active Substance: CILASTATIN SODIUM\IMIPENEM
     Indication: LUNG INFECTION
     Dosage: 1000MG, Q8H, IV
     Route: 042
     Dates: start: 20150318, end: 20150320
  2. PRIMAXIN [Suspect]
     Active Substance: CILASTATIN SODIUM\IMIPENEM
     Indication: MYCOBACTERIAL INFECTION
     Dosage: 1000MG, Q8H, IV
     Route: 042
     Dates: start: 20150318, end: 20150320

REACTIONS (2)
  - Seizure [None]
  - Infusion related reaction [None]

NARRATIVE: CASE EVENT DATE: 20150320
